FAERS Safety Report 20856219 (Version 1)
Quarter: 2022Q2

REPORT INFORMATION
  Report Type: Spontaneous
  Country: FR (occurrence: FR)
  Receive Date: 20220520
  Receipt Date: 20220520
  Transmission Date: 20220720
  Serious: Yes (Death, Other)
  Sender: FDA-Public Use
  Company Number: FR-BoehringerIngelheim-2022-BI-171735

PATIENT
  Age: 89 Year
  Sex: Female

DRUGS (3)
  1. GILOTRIF [Suspect]
     Active Substance: AFATINIB
     Indication: Product used for unknown indication
     Dates: start: 201909
  2. GILOTRIF [Suspect]
     Active Substance: AFATINIB
     Dates: start: 201910, end: 202012
  3. GILOTRIF [Suspect]
     Active Substance: AFATINIB
     Dates: start: 202101, end: 202201

REACTIONS (1)
  - Death [Fatal]

NARRATIVE: CASE EVENT DATE: 20220117
